FAERS Safety Report 7189002-2 (Version None)
Quarter: 2010Q4

REPORT INFORMATION
  Report Type: 
  Country: None (occurrence: None)
  Receive Date: 20101222
  Receipt Date: 20100730
  Transmission Date: 20110411
  Serious: No
  Sender: FDA-Public Use
  Company Number: US-AMGEN-KDL428262

PATIENT

DRUGS (1)
  1. ENBREL [Suspect]
     Indication: RHEUMATOID ARTHRITIS
     Dosage: 50 MG, QWK
     Route: 058
     Dates: start: 20080616

REACTIONS (8)
  - ARTHRALGIA [None]
  - BREATH SOUNDS ABNORMAL [None]
  - DYSPNOEA [None]
  - FEAR [None]
  - INJECTION SITE ERYTHEMA [None]
  - INJECTION SITE RASH [None]
  - LIP SWELLING [None]
  - OEDEMA PERIPHERAL [None]
